FAERS Safety Report 20993461 (Version 1)
Quarter: 2022Q2

REPORT INFORMATION
  Report Type: Spontaneous
  Country: US (occurrence: None)
  Receive Date: 20220621
  Receipt Date: 20220621
  Transmission Date: 20220720
  Serious: Yes (Other)
  Sender: FDA-Public Use
  Company Number: None

PATIENT
  Age: 33 Year
  Sex: Male

DRUGS (5)
  1. XELJANZ [Suspect]
     Active Substance: TOFACITINIB CITRATE
     Indication: Crohn^s disease
     Dosage: FREQUENCY : TWICE A DAY;?
     Route: 048
     Dates: start: 20220526, end: 20220620
  2. XELJANZ [Suspect]
     Active Substance: TOFACITINIB CITRATE
     Indication: Crohn^s disease
     Dosage: FREQUENCY : TWICE A DAY;?
     Route: 048
     Dates: start: 20220314, end: 20220414
  3. Acetaminophen Extra Strength 500 mg [Concomitant]
     Dates: start: 20220214
  4. PREDNISONE [Concomitant]
     Active Substance: PREDNISONE
     Dates: start: 20220214, end: 20220620
  5. ZYRTEC [Concomitant]
     Active Substance: CETIRIZINE HYDROCHLORIDE
     Dates: start: 20220620

REACTIONS (4)
  - Headache [None]
  - Rectal haemorrhage [None]
  - Mucosal haemorrhage [None]
  - Underdose [None]

NARRATIVE: CASE EVENT DATE: 20220620
